FAERS Safety Report 7041622-1 (Version None)
Quarter: 2010Q4

REPORT INFORMATION
  Report Type: 
  Country: None (occurrence: None)
  Receive Date: 20101013
  Receipt Date: 20100212
  Transmission Date: 20110411
  Serious: No
  Sender: FDA-Public Use
  Company Number: US-ASTRAZENECA-2010SE06456

PATIENT
  Age: 79 Year
  Sex: Female
  Weight: 33.6 kg

DRUGS (12)
  1. SYMBICORT [Suspect]
     Indication: MYCOBACTERIUM AVIUM COMPLEX INFECTION
     Dosage: 320/9  MICROGRAM BID
     Route: 055
     Dates: start: 20090509
  2. MUCINEX D [Concomitant]
     Indication: MYCOBACTERIUM AVIUM COMPLEX INFECTION
  3. LOPRESSOR [Concomitant]
  4. ACIPHEX [Concomitant]
  5. SYNTHROID [Concomitant]
  6. FLONASE [Concomitant]
  7. PRESERVE VISION WITH LUTEIN [Concomitant]
  8. ETHAMBUTOL HYDROCHLORIDE [Concomitant]
     Indication: MYCOBACTERIUM AVIUM COMPLEX INFECTION
  9. ZITHROMICIN [Concomitant]
     Indication: MYCOBACTERIUM AVIUM COMPLEX INFECTION
  10. REFAMPIN [Concomitant]
     Indication: MYCOBACTERIUM AVIUM COMPLEX INFECTION
  11. SINGULAIR [Concomitant]
     Indication: MYCOBACTERIUM AVIUM COMPLEX INFECTION
  12. ALBUTEROL [Concomitant]
     Indication: MYCOBACTERIUM AVIUM COMPLEX INFECTION

REACTIONS (5)
  - ANOSMIA [None]
  - BACK PAIN [None]
  - DYSPHONIA [None]
  - TONGUE DISCOLOURATION [None]
  - WEIGHT DECREASED [None]
